FAERS Safety Report 4354175-3 (Version None)
Quarter: 2004Q2

REPORT INFORMATION
  Report Type: 
  Country: None (occurrence: None)
  Receive Date: 20040506
  Receipt Date: 20040122
  Transmission Date: 20050107
  Serious: Yes (Hospitalization)
  Sender: FDA-Public Use
  Company Number: PHBS2004JP01330

PATIENT
  Age: 74 Year
  Sex: Female
  Weight: 45 kg

DRUGS (8)
  1. LOCHOL [Suspect]
     Indication: HYPERCHOLESTEROLAEMIA
     Dosage: 20 MG, QD
     Route: 048
     Dates: start: 20031028, end: 20040120
  2. BERIZYM [Concomitant]
     Indication: ABDOMINAL DISTENSION
     Dosage: 3 DF, UNK
     Route: 048
     Dates: start: 20031031, end: 20040120
  3. ALINAMIN [Concomitant]
     Dosage: 3 DF, UNK
     Route: 048
     Dates: start: 20031031, end: 20040120
  4. BIOFERMIN [Concomitant]
     Dosage: 3 G, UNK
     Route: 048
     Dates: start: 20031031, end: 20040120
  5. CLOTIAZEPAM [Concomitant]
     Indication: INSOMNIA
     Dosage: 3 DF, UNK
     Route: 048
     Dates: start: 20031031, end: 20040120
  6. ELIETEN [Concomitant]
     Dosage: 3 DF, UNK
     Route: 048
     Dates: start: 20031031, end: 20040120
  7. SENNOSIDE A [Concomitant]
     Indication: CONSTIPATION
     Dosage: 1 DF, UNK
     Route: 048
     Dates: start: 20031031, end: 20040120
  8. TOWAZUREN [Concomitant]
     Dosage: 2 G, UNK
     Route: 048
     Dates: start: 20031031, end: 20040120

REACTIONS (9)
  - ANAEMIA [None]
  - APLASTIC ANAEMIA [None]
  - CONJUNCTIVAL DISORDER [None]
  - ECCHYMOSIS [None]
  - LYMPHOCYTE COUNT DECREASED [None]
  - PANCYTOPENIA [None]
  - PLATELET COUNT DECREASED [None]
  - RED BLOOD CELL COUNT DECREASED [None]
  - WHITE BLOOD CELL COUNT DECREASED [None]
